FAERS Safety Report 7555737-2 (Version None)
Quarter: 2011Q2

REPORT INFORMATION
  Report Type: 
  Country: None (occurrence: None)
  Receive Date: 20110617
  Receipt Date: 20110608
  Transmission Date: 20111010
  Serious: Yes (Other)
  Sender: FDA-Public Use
  Company Number: US-RB-000931-10

PATIENT
  Sex: Male

DRUGS (3)
  1. SUBOXONE [Suspect]
     Indication: DRUG DEPENDENCE
     Route: 060
     Dates: start: 20090901, end: 20100701
  2. SUBOXONE [Suspect]
     Route: 060
     Dates: start: 20100801
  3. SUBOXONE [Suspect]
     Route: 060
     Dates: start: 20100701, end: 20100801

REACTIONS (7)
  - HEADACHE [None]
  - BACK PAIN [None]
  - ARNOLD-CHIARI MALFORMATION [None]
  - DYSURIA [None]
  - CONDITION AGGRAVATED [None]
  - FEELING OF BODY TEMPERATURE CHANGE [None]
  - NECK PAIN [None]
